FAERS Safety Report 5721618-X (Version None)
Quarter: 2008Q2

REPORT INFORMATION
  Report Type: 
  Country: None (occurrence: None)
  Receive Date: 20080429
  Receipt Date: 20070221
  Transmission Date: 20081010
  Serious: No
  Sender: FDA-Public Use
  Company Number: US-ASTRAZENECA-2007UW03355

PATIENT
  Sex: Male

DRUGS (9)
  1. NEXIUM [Suspect]
     Route: 048
  2. CYMBALTA [Concomitant]
  3. KLONOPIN [Concomitant]
  4. LORCET-HD [Concomitant]
  5. XANAX [Concomitant]
  6. AMBIEN [Concomitant]
  7. TRIAMCINOLONE [Concomitant]
  8. ZOLOFT [Concomitant]
  9. ATARAX [Concomitant]

REACTIONS (1)
  - DRUG SCREEN POSITIVE [None]
